FAERS Safety Report 9781322 (Version 1)
Quarter: 2013Q4

REPORT INFORMATION
  Report Type: Spontaneous
  Country: US (occurrence: None)
  Receive Date: 20131223
  Receipt Date: 20131223
  Transmission Date: 20140711
  Serious: Yes (Other)
  Sender: FDA-Public Use
  Company Number: None

PATIENT
  Age: 53 Year
  Sex: Male

DRUGS (1)
  1. SUTENT [Suspect]
     Indication: RENAL CANCER
     Route: 048

REACTIONS (7)
  - Skin ulcer [None]
  - Blister [None]
  - Diarrhoea [None]
  - Nausea [None]
  - Fatigue [None]
  - Laceration [None]
  - Impaired healing [None]
